FAERS Safety Report 18767793 (Version 1)
Quarter: 2021Q1

REPORT INFORMATION
  Report Type: Spontaneous
  Country: US (occurrence: US)
  Receive Date: 20210120
  Receipt Date: 20210120
  Transmission Date: 20210419
  Serious: Yes (Hospitalization)
  Sender: FDA-Public Use
  Company Number: None

PATIENT
  Age: 68 Year
  Sex: Male
  Weight: 123 kg

DRUGS (1)
  1. DESIPRAMINE (DESIPRAMINE HCL 50MG CAP) [Suspect]
     Active Substance: DESIPRAMINE HYDROCHLORIDE
     Route: 048
     Dates: start: 20120409, end: 20201019

REACTIONS (1)
  - Haemorrhage [None]

NARRATIVE: CASE EVENT DATE: 20201019
